FAERS Safety Report 13553784 (Version 1)
Quarter: 2017Q2

REPORT INFORMATION
  Report Type: Spontaneous
  Country: US (occurrence: US)
  Receive Date: 20170517
  Receipt Date: 20170517
  Transmission Date: 20170830
  Serious: No
  Sender: FDA-Public Use
  Company Number: US-ELI_LILLY_AND_COMPANY-US201705003079

PATIENT
  Sex: Female

DRUGS (1)
  1. FORTEO [Suspect]
     Active Substance: TERIPARATIDE
     Indication: PRODUCT USED FOR UNKNOWN INDICATION
     Dosage: 20 UG, UNKNOWN
     Route: 058
     Dates: start: 20170502

REACTIONS (6)
  - Nausea [Unknown]
  - Gait disturbance [Unknown]
  - Pain in extremity [Unknown]
  - Insomnia [Unknown]
  - Extrasystoles [Unknown]
  - Fatigue [Unknown]
